FAERS Safety Report 25844258 (Version 2)
Quarter: 2025Q4

REPORT INFORMATION
  Report Type: Spontaneous
  Country: US (occurrence: US)
  Receive Date: 20250925
  Receipt Date: 20251030
  Transmission Date: 20260118
  Serious: Yes (Other)
  Sender: TEVA
  Company Number: US-TEVA-VS-3373794

PATIENT
  Age: 76 Year
  Sex: Male

DRUGS (14)
  1. VALSARTAN [Suspect]
     Active Substance: VALSARTAN
     Indication: Hypertension
     Route: 065
     Dates: start: 20150305, end: 20150802
  2. HYDROCHLOROTHIAZIDE\VALSARTAN [Suspect]
     Active Substance: HYDROCHLOROTHIAZIDE\VALSARTAN
     Indication: Hypertension
     Dosage: 160-12.5MG, HUAHAI US; SOLCO HEALTHCARE U.S, LLC
     Route: 065
     Dates: start: 20180418, end: 20180716
  3. VALSARTAN [Suspect]
     Active Substance: VALSARTAN
     Indication: Hypertension
     Dosage: AUROBINDO PHARMA, LTD.
     Route: 065
     Dates: start: 20161114, end: 20180114
  4. VALSARTAN [Suspect]
     Active Substance: VALSARTAN
     Indication: Hypertension
     Dosage: SANDOZ, INC.
     Route: 065
     Dates: start: 20140809, end: 20180513
  5. VALSARTAN [Suspect]
     Active Substance: VALSARTAN
     Indication: Hypertension
     Route: 065
     Dates: start: 20150205, end: 20160222
  6. HYDROCHLOROTHIAZIDE\VALSARTAN [Suspect]
     Active Substance: HYDROCHLOROTHIAZIDE\VALSARTAN
     Indication: Hypertension
     Dosage: 160-12.5MG
     Route: 065
     Dates: start: 20180115
  7. HYDROCHLOROTHIAZIDE\VALSARTAN [Suspect]
     Active Substance: HYDROCHLOROTHIAZIDE\VALSARTAN
     Indication: Hypertension
     Dosage: 160-12.5MG, GOLDEN STATE
     Route: 065
     Dates: start: 20180205, end: 20180417
  8. CRESTOR [Concomitant]
     Active Substance: ROSUVASTATIN CALCIUM
     Indication: Hyperlipidaemia
     Route: 065
     Dates: start: 20140102, end: 20170601
  9. NEXIUM [Concomitant]
     Active Substance: ESOMEPRAZOLE MAGNESIUM
     Indication: Gastrooesophageal reflux disease
     Route: 065
     Dates: start: 201406
  10. DIOVAN [Concomitant]
     Active Substance: VALSARTAN
     Indication: Hypertension
     Dates: start: 20140118, end: 20150313
  11. RANITIDINE [Concomitant]
     Active Substance: RANITIDINE
     Indication: Gastrooesophageal reflux disease
     Dates: start: 20150106, end: 20150520
  12. OMEPRAZOLE [Concomitant]
     Active Substance: OMEPRAZOLE
     Indication: Gastrooesophageal reflux disease
     Route: 065
     Dates: start: 20150814, end: 20220212
  13. POTASSIUM CHLORIDE [Concomitant]
     Active Substance: POTASSIUM CHLORIDE
     Indication: Hypokalaemia
     Route: 065
     Dates: start: 20180115
  14. VITAMINS [Concomitant]
     Active Substance: VITAMINS
     Indication: Nutritional supplementation
     Dosage: 1 CAPSULE
     Route: 065
     Dates: start: 1999

REACTIONS (1)
  - Prostate cancer [Unknown]
